FAERS Safety Report 9584175 (Version 1)
Quarter: 2013Q4

REPORT INFORMATION
  Report Type: Spontaneous
  Country: US (occurrence: US)
  Receive Date: 20131002
  Receipt Date: 20131002
  Transmission Date: 20140711
  Serious: No
  Sender: FDA-Public Use
  Company Number: US-AMGEN-USASP2013051286

PATIENT
  Age: 57 Year
  Sex: Female

DRUGS (9)
  1. ENBREL [Suspect]
     Indication: ANKYLOSING SPONDYLITIS
     Dosage: 50 MG, QWK
     Route: 058
     Dates: start: 2010
  2. VITAMIN C                          /00008001/ [Concomitant]
     Dosage: UNK
  3. MELOXICAM [Concomitant]
     Dosage: UNK
  4. GABAPENTIN [Concomitant]
     Dosage: UNK
  5. PRILOSEC                           /00661201/ [Concomitant]
     Dosage: UNK
  6. FLEXERIL                           /00428402/ [Concomitant]
     Dosage: UNK
  7. PROBIOTICS [Concomitant]
     Dosage: UNK
  8. STOOL SOFTENER [Concomitant]
     Dosage: UNK
  9. BALSALAZIDE [Concomitant]
     Dosage: UNK

REACTIONS (2)
  - Mammogram abnormal [Unknown]
  - Scar [Unknown]
